FAERS Safety Report 23978723 (Version 1)
Quarter: 2024Q2

REPORT INFORMATION
  Report Type: Report from Study
  Country: CO (occurrence: CO)
  Receive Date: 20240614
  Receipt Date: 20240614
  Transmission Date: 20240716
  Serious: Yes (Hospitalization, Other)
  Sender: FDA-Public Use
  Company Number: CO-ABBVIE-5799743

PATIENT
  Sex: Male
  Weight: 40 kg

DRUGS (8)
  1. HUMIRA [Suspect]
     Active Substance: ADALIMUMAB
     Indication: Ankylosing spondylitis
     Dosage: FORM STRENGTH: 40 MILLIGRAM
     Route: 058
     Dates: start: 20110404, end: 20240511
  2. LASIX [Concomitant]
     Active Substance: FUROSEMIDE
     Indication: Cardiac failure
     Route: 048
     Dates: start: 202405
  3. CARBIDOPA AND LEVODOPA [Concomitant]
     Active Substance: CARBIDOPA\LEVODOPA
     Indication: Parkinson^s disease
     Dosage: UNKNOW
     Route: 048
     Dates: start: 2021
  4. ENTRESTO [Concomitant]
     Active Substance: SACUBITRIL\VALSARTAN
     Indication: Cardiac failure
     Route: 048
     Dates: start: 202405
  5. SACUBITRIL [Concomitant]
     Active Substance: SACUBITRIL
     Indication: Cardiac failure
     Route: 048
     Dates: start: 202405
  6. BISOPROLOL [Concomitant]
     Active Substance: BISOPROLOL\BISOPROLOL FUMARATE
     Indication: Cardiac failure
     Route: 048
     Dates: start: 202405
  7. Doxiclat [Concomitant]
     Indication: Cardiac failure
     Route: 048
     Dates: start: 202405
  8. LEVOTHYROXINE [Concomitant]
     Active Substance: LEVOTHYROXINE\LEVOTHYROXINE SODIUM
     Indication: Hypothyroidism
     Dosage: FREQUENCY TEXT: FASTING
     Route: 048
     Dates: start: 2020

REACTIONS (11)
  - Cardiomegaly [Recovered/Resolved]
  - Insomnia [Recovered/Resolved]
  - Cardiac failure [Recovering/Resolving]
  - Asthenia [Recovered/Resolved]
  - Asphyxia [Recovered/Resolved]
  - Fatigue [Recovering/Resolving]
  - Parkinson^s disease [Recovering/Resolving]
  - Depression [Recovered/Resolved]
  - Anxiety [Recovered/Resolved]
  - Hypothyroidism [Recovering/Resolving]
  - Pulmonary oedema [Recovered/Resolved]

NARRATIVE: CASE EVENT DATE: 20200101
